FAERS Safety Report 5307559-0 (Version None)
Quarter: 2007Q2

REPORT INFORMATION
  Report Type: 
  Country: None (occurrence: None)
  Receive Date: 20070425
  Receipt Date: 20070413
  Transmission Date: 20071010
  Serious: Yes (Hospitalization)
  Sender: FDA-Public Use
  Company Number: US-ELI_LILLY_AND_COMPANY-US200703004189

PATIENT
  Age: 79 Year
  Sex: Female

DRUGS (24)
  1. FORTEO [Suspect]
     Indication: OSTEOPOROSIS
     Dosage: UNK, UNK
     Dates: start: 20060101, end: 20070101
  2. FORTEO [Suspect]
     Dates: start: 20070320
  3. TOPROL-XL [Concomitant]
     Indication: HEART RATE
  4. FUROSEMIDE [Concomitant]
     Indication: DIURETIC THERAPY
  5. SPIRONOLACTONE [Concomitant]
     Indication: DIURETIC THERAPY
  6. TRICOR [Concomitant]
     Indication: BLOOD CHOLESTEROL
  7. PREDNISONE TAB [Concomitant]
     Indication: TEMPORAL ARTERITIS
  8. LEVOTHYROXINE SODIUM [Concomitant]
     Indication: HYPOTHYROIDISM
  9. ZOLOFT [Concomitant]
     Indication: DEPRESSION
  10. AMBIEN [Concomitant]
     Indication: SLEEP DISORDER
  11. NORTRIPTYLINE HCL [Concomitant]
     Indication: DEPRESSION
  12. MORPHINE [Concomitant]
     Indication: PAIN
  13. NORCO [Concomitant]
     Indication: PAIN
     Dosage: UNK, UNK 10/135
  14. SPIRIVA [Concomitant]
     Indication: EMPHYSEMA
  15. ADVAIR DISKUS 100/50 [Concomitant]
     Indication: EMPHYSEMA
  16. LIDOCAINE HCL [Concomitant]
     Indication: BACK PAIN
     Dosage: UNK, UNK PATCH 5%
  17. TUMS ULTRA [Concomitant]
     Indication: MINERAL SUPPLEMENTATION
  18. ERGOCALCIFEROL [Concomitant]
     Dosage: 800 U, UNK
  19. VITAMIN A [Concomitant]
     Dosage: 400 IU, UNK
  20. VITAMIN B6 [Concomitant]
  21. VITAMIN B-12 [Concomitant]
  22. VITAMIN E [Concomitant]
  23. ASCORBIC ACID [Concomitant]
  24. FOLIC ACID [Concomitant]

REACTIONS (6)
  - ABDOMINAL PAIN [None]
  - HIP ARTHROPLASTY [None]
  - MALAISE [None]
  - NERVE COMPRESSION [None]
  - PAIN [None]
  - RECTAL PROLAPSE [None]
